FAERS Safety Report 11959672 (Version 1)
Quarter: 2016Q1

REPORT INFORMATION
  Report Type: Report from Study
  Country: US (occurrence: US)
  Receive Date: 20160126
  Receipt Date: 20160126
  Transmission Date: 20160526
  Serious: No
  Sender: FDA-Public Use
  Company Number: US-ABBVIE-15K-163-1375821-00

PATIENT
  Age: 39 Year
  Sex: Female

DRUGS (2)
  1. HUMIRA [Suspect]
     Active Substance: ADALIMUMAB
     Indication: ANKYLOSING SPONDYLITIS
     Route: 065
     Dates: start: 20150305
  2. HUMIRA [Suspect]
     Active Substance: ADALIMUMAB
     Route: 065
     Dates: start: 2015

REACTIONS (5)
  - Incorrect dose administered [Unknown]
  - Device issue [Unknown]
  - Injection site pain [Recovered/Resolved]
  - Injection site pain [Recovered/Resolved]
  - Seasonal allergy [Not Recovered/Not Resolved]

NARRATIVE: CASE EVENT DATE: 20150305
